FAERS Safety Report 15061771 (Version 3)
Quarter: 2018Q3

REPORT INFORMATION
  Report Type: Spontaneous
  Country: US (occurrence: US)
  Receive Date: 20180625
  Receipt Date: 20180801
  Transmission Date: 20181010
  Serious: Yes (Other)
  Sender: FDA-Public Use
  Company Number: US-ROCHE-2142345

PATIENT
  Age: 51 Year
  Sex: Male
  Weight: 73.4 kg

DRUGS (1)
  1. OCREVUS [Suspect]
     Active Substance: OCRELIZUMAB
     Indication: MULTIPLE SCLEROSIS
     Dosage: FIRST OCREVUS INFUSION
     Route: 042
     Dates: start: 20180615

REACTIONS (4)
  - Blood glucose decreased [Recovering/Resolving]
  - Incoherent [Recovering/Resolving]
  - Seizure [Recovering/Resolving]
  - Aggression [Recovering/Resolving]

NARRATIVE: CASE EVENT DATE: 20180615
